FAERS Safety Report 22016714 (Version 1)
Quarter: 2023Q1

REPORT INFORMATION
  Report Type: Spontaneous
  Country: US (occurrence: None)
  Receive Date: 20230217
  Receipt Date: 20230217
  Transmission Date: 20230417
  Serious: Yes (Hospitalization)
  Sender: FDA-Public Use
  Company Number: None

PATIENT
  Sex: Female

DRUGS (1)
  1. DALFAMPRIDINE [Suspect]
     Active Substance: DALFAMPRIDINE
     Indication: Multiple sclerosis
     Dosage: 10MG 2 TIMES DAILY BY MOUTH
     Route: 048
     Dates: start: 20210617

REACTIONS (3)
  - Balance disorder [None]
  - Limb injury [None]
  - Multiple sclerosis relapse [None]
